FAERS Safety Report 6584708-8 (Version None)
Quarter: 2010Q1

REPORT INFORMATION
  Report Type: 
  Country: None (occurrence: None)
  Receive Date: 20100217
  Receipt Date: 20100205
  Transmission Date: 20100710
  Serious: Yes (Hospitalization, Other)
  Sender: FDA-Public Use
  Company Number: PHHO2007JP05527

PATIENT
  Sex: Male

DRUGS (11)
  1. STI571/CGP57148B T35717+CAPS [Suspect]
     Indication: GASTROINTESTINAL STROMAL TUMOUR
     Dosage: 400 MG/DAY
     Route: 048
     Dates: start: 20040311, end: 20040728
  2. STI571/CGP57148B T35717+CAPS [Suspect]
     Dosage: 400 MG/DAY
     Route: 048
     Dates: start: 20040808, end: 20040824
  3. STI571/CGP57148B T35717+CAPS [Suspect]
     Dosage: 400 MG/DAY
     Route: 048
     Dates: start: 20041005, end: 20041101
  4. STI571/CGP57148B T35717+CAPS [Suspect]
     Dosage: 200 MG/DAY
     Route: 048
     Dates: start: 20041102, end: 20041111
  5. STI571/CGP57148B T35717+CAPS [Suspect]
     Dosage: 400 MG/DAY
     Route: 048
     Dates: start: 20070112
  6. STI571/CGP57148B T35717+CAPS [Suspect]
     Dosage: 400 MG/DAY
     Route: 048
     Dates: start: 20080311, end: 20080329
  7. STI571/CGP57148B T35717+CAPS [Suspect]
     Dosage: 400 MG/DAY
     Route: 048
     Dates: start: 20080411, end: 20080703
  8. STI571/CGP57148B T35717+CAPS [Suspect]
     Dosage: 200 MG/DAY
     Route: 048
     Dates: start: 20080704, end: 20080731
  9. STI571/CGP57148B T35717+CAPS [Suspect]
     Dosage: 400 MG/DAY
     Route: 048
     Dates: start: 20080801, end: 20080902
  10. STI571/CGP57148B T35717+CAPS [Suspect]
     Dosage: 200 MG/DAY
     Route: 048
     Dates: start: 20080903, end: 20090129
  11. STI571/CGP57148B T35717+CAPS [Suspect]
     Dosage: 300 MG/DAY
     Route: 048
     Dates: start: 20090130, end: 20090313

REACTIONS (10)
  - ASTHMA [None]
  - DECREASED APPETITE [None]
  - DYSPNOEA EXERTIONAL [None]
  - MALIGNANT NEOPLASM PROGRESSION [None]
  - METASTATIC NEOPLASM [None]
  - NAUSEA [None]
  - PULMONARY CONGESTION [None]
  - SURGERY [None]
  - VOMITING [None]
  - WHEEZING [None]
